FAERS Safety Report 21291212 (Version 1)
Quarter: 2022Q3

REPORT INFORMATION
  Report Type: Spontaneous
  Country: US (occurrence: US)
  Receive Date: 20220903
  Receipt Date: 20220903
  Transmission Date: 20221026
  Serious: No
  Sender: FDA-Public Use
  Company Number: US-drreddys-SPO/USA/22/0154102

PATIENT
  Age: 22 Year

DRUGS (1)
  1. ZENATANE [Suspect]
     Active Substance: ISOTRETINOIN
     Indication: Product used for unknown indication
     Dosage: RMA ISSUE DATE: 18/APRIL/2022 11:30:36 AM, 20/JUNE/2022 02:29:01 PM, 20/JULY/2022 07:07:06 PM

REACTIONS (1)
  - Adverse drug reaction [Unknown]
